FAERS Safety Report 10256331 (Version 1)
Quarter: 2014Q2

REPORT INFORMATION
  Report Type: Spontaneous
  Country: US (occurrence: US)
  Receive Date: 20140624
  Receipt Date: 20140624
  Transmission Date: 20141212
  Serious: Yes (Other)
  Sender: FDA-Public Use
  Company Number: US-ACTAVIS-2014-13991

PATIENT
  Age: 68 Year
  Sex: Male

DRUGS (1)
  1. GABAPENTIN (AELLC) [Suspect]
     Indication: HYPOAESTHESIA
     Dosage: 300 MG, QHS
     Route: 065

REACTIONS (1)
  - Asterixis [Recovered/Resolved]
